FAERS Safety Report 13104298 (Version 1)
Quarter: 2017Q1

REPORT INFORMATION
  Report Type: Spontaneous
  Country: US (occurrence: US)
  Receive Date: 20170110
  Receipt Date: 20170110
  Transmission Date: 20170428
  Serious: No
  Sender: FDA-Public Use
  Company Number: None

PATIENT
  Age: 67 Year
  Sex: Female

DRUGS (1)
  1. XELJANZ [Suspect]
     Active Substance: TOFACITINIB CITRATE
     Indication: RHEUMATOID ARTHRITIS
     Route: 048
     Dates: start: 20160616, end: 20160620

REACTIONS (4)
  - Tachycardia [None]
  - Asthenia [None]
  - Therapy cessation [None]
  - Disorientation [None]

NARRATIVE: CASE EVENT DATE: 20160620
